FAERS Safety Report 7441499-6 (Version None)
Quarter: 2011Q2

REPORT INFORMATION
  Report Type: 
  Country: None (occurrence: None)
  Receive Date: 20110425
  Receipt Date: 20110425
  Transmission Date: 20111010
  Serious: Yes (Life-Threatening)
  Sender: FDA-Public Use
  Company Number: None

PATIENT
  Age: 57 Year
  Sex: Female
  Weight: 68.0396 kg

DRUGS (1)
  1. MINOXIDIL [Suspect]
     Indication: HAIR DISORDER
     Dosage: ONCE A DAY OTHER
     Route: 050
     Dates: start: 20000102, end: 20110111

REACTIONS (4)
  - ALOPECIA [None]
  - NEOPLASM [None]
  - BACTERIAL INFECTION [None]
  - CYST [None]
